FAERS Safety Report 5105705-5 (Version None)
Quarter: 2006Q3

REPORT INFORMATION
  Report Type: 
  Country: None (occurrence: None)
  Receive Date: 20060915
  Receipt Date: 20060907
  Transmission Date: 20061208
  Serious: Yes (Other)
  Sender: FDA-Public Use
  Company Number: PHEH2006US11483

PATIENT
  Age: 73 Year
  Sex: Female

DRUGS (1)
  1. LOTREL [Suspect]
     Indication: HYPERTENSION
     Dosage: UNK, QD
     Route: 048
     Dates: start: 20040101, end: 20060821

REACTIONS (3)
  - BIOPSY [None]
  - PRURITUS [None]
  - SKIN DISCOLOURATION [None]
